FAERS Safety Report 7943435-2 (Version None)
Quarter: 2011Q4

REPORT INFORMATION
  Report Type: 
  Country: None (occurrence: None)
  Receive Date: 20111128
  Receipt Date: 20111118
  Transmission Date: 20120403
  Serious: Yes (Other)
  Sender: FDA-Public Use
  Company Number: JP-TEVA-310109ISR

PATIENT
  Sex: Male

DRUGS (9)
  1. ORENCIA [Suspect]
     Indication: RHEUMATOID ARTHRITIS
     Route: 042
  2. ALLOPURINOL [Concomitant]
  3. PREDNISOLONE [Suspect]
     Indication: RHEUMATOID ARTHRITIS
     Dosage: 7.5 MILLIGRAM;
     Route: 048
  4. TACROLIMUS [Suspect]
     Indication: RHEUMATOID ARTHRITIS
     Dates: start: 20110101, end: 20110101
  5. AMLODIPINE [Concomitant]
  6. METHOTREXATE [Suspect]
     Indication: RHEUMATOID ARTHRITIS
  7. ISONIAZID [Concomitant]
  8. MINOCYCLINE HCL [Concomitant]
  9. LOXONIN [Concomitant]

REACTIONS (1)
  - PLEURISY [None]
